APPROVED DRUG PRODUCT: GLYRX-PF
Active Ingredient: GLYCOPYRROLATE
Strength: 0.2MG/ML (0.2MG/ML)
Dosage Form/Route: SOLUTION;INTRAMUSCULAR, INTRAVENOUS
Application: N210997 | Product #001
Applicant: EXELA PHARMA SCIENCES LLC
Approved: Jul 11, 2018 | RLD: Yes | RS: No | Type: DISCN